FAERS Safety Report 22089625 (Version 2)
Quarter: 2023Q1

REPORT INFORMATION
  Report Type: Spontaneous
  Country: CN (occurrence: CN)
  Receive Date: 20230313
  Receipt Date: 20230314
  Transmission Date: 20230417
  Serious: Yes (Hospitalization)
  Sender: FDA-Public Use
  Company Number: CN-BAYER-2023A026617

PATIENT
  Age: 77 Year
  Sex: Female
  Weight: 46 kg

DRUGS (2)
  1. GLUCOBAY [Interacting]
     Active Substance: ACARBOSE
     Indication: Diabetes mellitus
     Dosage: 50 MG, TID
     Route: 048
     Dates: start: 20230117, end: 20230222
  2. GLIMEPIRIDE [Interacting]
     Active Substance: GLIMEPIRIDE
     Indication: Diabetes mellitus
     Dosage: 4 MG, QD
     Route: 048
     Dates: start: 20230117, end: 20230222

REACTIONS (4)
  - Hypoglycaemia [Recovering/Resolving]
  - Asthenia [Recovering/Resolving]
  - Dizziness [Recovering/Resolving]
  - Speech disorder [Recovering/Resolving]

NARRATIVE: CASE EVENT DATE: 20230212
